FAERS Safety Report 10966293 (Version 1)
Quarter: 2015Q1

REPORT INFORMATION
  Report Type: Spontaneous
  Country: US (occurrence: US)
  Receive Date: 20150330
  Receipt Date: 20150330
  Transmission Date: 20150721
  Serious: No
  Sender: FDA-Public Use
  Company Number: US-MYLANLABS-2014S1012931

PATIENT

DRUGS (12)
  1. LISINOPRIL. [Concomitant]
     Active Substance: LISINOPRIL
     Indication: BLOOD PRESSURE INCREASED
     Dosage: UNK
  2. CITALOPRAM [Concomitant]
     Active Substance: CITALOPRAM HYDROBROMIDE
     Dosage: 20 MG,AM
  3. VALIUM [Concomitant]
     Active Substance: DIAZEPAM
     Dosage: UNK
  4. DILTIAZEM [Concomitant]
     Active Substance: DILTIAZEM
     Indication: BLOOD PRESSURE INCREASED
     Dosage: UNK
  5. METOPROLOL [Concomitant]
     Active Substance: METOPROLOL
     Indication: BLOOD PRESSURE INCREASED
     Dosage: UNK
  6. FENTANYL TRANSDERMAL SYSTEM [Suspect]
     Active Substance: FENTANYL
     Indication: PAIN
     Dosage: 12.5 ?G,QH
     Route: 062
     Dates: start: 201405
  7. FLEXERIL [Concomitant]
     Active Substance: CYCLOBENZAPRINE HYDROCHLORIDE
     Dosage: UNK
  8. TRAMADOL [Concomitant]
     Active Substance: TRAMADOL
     Dosage: UNK
  9. CHLORTHALIDONE. [Concomitant]
     Active Substance: CHLORTHALIDONE
     Indication: BLOOD PRESSURE INCREASED
     Dosage: UNK
  10. INDOMETHACIN. [Concomitant]
     Active Substance: INDOMETHACIN
     Dosage: UNK
  11. NEXIUM [Concomitant]
     Active Substance: ESOMEPRAZOLE MAGNESIUM
     Dosage: UNK
  12. TYLENOL [Concomitant]
     Active Substance: ACETAMINOPHEN
     Dosage: UNK

REACTIONS (3)
  - Dysgeusia [Recovered/Resolved]
  - Application site erythema [Not Recovered/Not Resolved]
  - Paraesthesia [Recovered/Resolved]

NARRATIVE: CASE EVENT DATE: 201405
